FAERS Safety Report 16841673 (Version 3)
Quarter: 2021Q3

REPORT INFORMATION
  Report Type: Report from Study
  Country: US (occurrence: US)
  Receive Date: 20190923
  Receipt Date: 20210802
  Transmission Date: 20211014
  Serious: Yes (Death)
  Sender: FDA-Public Use
  Company Number: US-PFIZER INC-2019407496

PATIENT

DRUGS (3)
  1. CARFILZOMIB [Suspect]
     Active Substance: CARFILZOMIB
     Indication: SMALL CELL LUNG CANCER
     Dosage: 20 MG/M2, CYCLIC (ON DAYS 1, 2 OF CYCLE 1 (TERMED ^STEPPED?UP^ DOSING)
  2. CARFILZOMIB [Suspect]
     Active Substance: CARFILZOMIB
     Dosage: 36 MG/M2, CYCLIC  (ON DAYS 8, 9, 15, AND 16 CYCLE 1)
  3. IRINOTECAN HCL [Suspect]
     Active Substance: IRINOTECAN HYDROCHLORIDE
     Indication: SMALL CELL LUNG CANCER
     Dosage: 125 MG/M2, CYCLIC, (D1, 8, 15 Q28D)

REACTIONS (1)
  - Sepsis [Fatal]
